FAERS Safety Report 8022770-6 (Version None)
Quarter: 2012Q1

REPORT INFORMATION
  Report Type: 
  Country: None (occurrence: None)
  Receive Date: 20120104
  Receipt Date: 20111230
  Transmission Date: 20120608
  Serious: Yes (Hospitalization, Other)
  Sender: FDA-Public Use
  Company Number: US-MERCK-1109USA02407

PATIENT
  Age: 61 Year
  Sex: Female
  Weight: 88 kg

DRUGS (3)
  1. LOSARTAN POTASSIUM [Concomitant]
     Indication: HYPERTENSION
     Route: 065
     Dates: start: 20050101
  2. FOSAMAX [Suspect]
     Indication: OSTEOPOROSIS
     Route: 048
     Dates: start: 19980401, end: 20070201
  3. FOSAMAX [Suspect]
     Indication: OSTEOPENIA
     Route: 048
     Dates: start: 19980401, end: 20070201

REACTIONS (22)
  - OSTEOARTHRITIS [None]
  - COLITIS ISCHAEMIC [None]
  - INTERVERTEBRAL DISC DEGENERATION [None]
  - GOUT [None]
  - BLOOD CHOLESTEROL INCREASED [None]
  - HYPOTHYROIDISM [None]
  - BOWEN'S DISEASE [None]
  - ANXIETY [None]
  - HEPATIC CIRRHOSIS [None]
  - BACK PAIN [None]
  - ASTHENIA [None]
  - FATIGUE [None]
  - PUBIS FRACTURE [None]
  - GAIT DISTURBANCE [None]
  - PATHOLOGICAL FRACTURE [None]
  - FEMUR FRACTURE [None]
  - WRIST FRACTURE [None]
  - GROIN PAIN [None]
  - FALL [None]
  - FRACTURED SACRUM [None]
  - LIPOMA [None]
  - PAIN IN EXTREMITY [None]
